FAERS Safety Report 4472278-X (Version None)
Quarter: 2004Q4

REPORT INFORMATION
  Report Type: 
  Country: None (occurrence: None)
  Receive Date: 20041012
  Receipt Date: 20041005
  Transmission Date: 20050328
  Serious: Yes (Hospitalization)
  Sender: FDA-Public Use
  Company Number: FR-MERCK-0410FRA00027

PATIENT
  Age: 77 Year
  Sex: Male

DRUGS (2)
  1. FLUINDIONE [Suspect]
     Route: 048
  2. VIOXX [Suspect]
     Route: 048

REACTIONS (3)
  - ALANINE AMINOTRANSFERASE INCREASED [None]
  - ASPARTATE AMINOTRANSFERASE INCREASED [None]
  - PROTHROMBIN LEVEL DECREASED [None]
